FAERS Safety Report 10057154 (Version 2)
Quarter: 2014Q2

REPORT INFORMATION
  Report Type: Report from Study
  Country: CA (occurrence: CA)
  Receive Date: 20140403
  Receipt Date: 20140403
  Transmission Date: 20141212
  Serious: Yes (Hospitalization, Other)
  Sender: FDA-Public Use
  Company Number: CA-ABBVIE-14P-028-1202505-00

PATIENT
  Age: 60 Year
  Sex: Male

DRUGS (2)
  1. HUMIRA [Suspect]
     Indication: CROHN^S DISEASE
     Route: 058
     Dates: start: 20080610, end: 20140124
  2. HUMIRA [Suspect]
     Route: 058
     Dates: start: 20140221, end: 20140226

REACTIONS (5)
  - Blood disorder [Unknown]
  - Gastric haemorrhage [Not Recovered/Not Resolved]
  - Iron deficiency [Not Recovered/Not Resolved]
  - Asthenia [Recovered/Resolved]
  - Palpitations [Recovered/Resolved]
